FAERS Safety Report 13323607 (Version 1)
Quarter: 2017Q1

REPORT INFORMATION
  Report Type: Spontaneous
  Country: US (occurrence: US)
  Receive Date: 20170310
  Receipt Date: 20170310
  Transmission Date: 20170428
  Serious: Yes (Other)
  Sender: FDA-Public Use
  Company Number: US-BAYER-2017-045084

PATIENT
  Age: 42 Year
  Sex: Female

DRUGS (2)
  1. MIRENA [Suspect]
     Active Substance: LEVONORGESTREL
     Indication: HAEMORRHAGE PROPHYLAXIS
     Dosage: M20 MCG/24HR, CONT
     Route: 014
     Dates: start: 20161228
  2. MIRENA [Suspect]
     Active Substance: LEVONORGESTREL
     Indication: CONTRACEPTION

REACTIONS (4)
  - Uterine polyp [None]
  - Depressed mood [Not Recovered/Not Resolved]
  - Amenorrhoea [Recovered/Resolved]
  - Genital haemorrhage [Not Recovered/Not Resolved]
